FAERS Safety Report 7459470-7 (Version None)
Quarter: 2011Q2

REPORT INFORMATION
  Report Type: 
  Country: None (occurrence: None)
  Receive Date: 20110504
  Receipt Date: 20110504
  Transmission Date: 20111010
  Serious: Yes (Life-Threatening, Disabling, Other)
  Sender: FDA-Public Use
  Company Number: None

PATIENT
  Sex: Male
  Weight: 90.7194 kg

DRUGS (2)
  1. PROPECIA [Suspect]
     Indication: PROPHYLAXIS
     Dosage: 1 PER DAY EVERYDAY
     Dates: start: 20040306, end: 20090710
  2. PROPECIA [Suspect]
     Indication: ALOPECIA
     Dosage: 1 PER DAY EVERYDAY
     Dates: start: 20040306, end: 20090710

REACTIONS (8)
  - DRUG INEFFECTIVE [None]
  - GROIN PAIN [None]
  - TESTICULAR SWELLING [None]
  - DEPRESSION [None]
  - ANGER [None]
  - LIBIDO DECREASED [None]
  - THINKING ABNORMAL [None]
  - DECREASED INTEREST [None]
